FAERS Safety Report 23861408 (Version 2)
Quarter: 2024Q3

REPORT INFORMATION
  Report Type: Spontaneous
  Country: US (occurrence: US)
  Receive Date: 20240516
  Receipt Date: 20240701
  Transmission Date: 20241016
  Serious: No
  Sender: Haleon PLC
  Company Number: US-HALEON-2175158

PATIENT
  Age: 65 Year
  Sex: Female

DRUGS (1)
  1. NICORETTE CINNAMON SURGE [Suspect]
     Active Substance: NICOTINE
     Indication: Product used for unknown indication
     Dosage: EXPDATE:202605 , CHEW ABOUT 8-10 A DAY

REACTIONS (2)
  - Nicotine dependence [Not Recovered/Not Resolved]
  - Product use issue [Unknown]
